FAERS Safety Report 19746647 (Version 1)
Quarter: 2021Q3

REPORT INFORMATION
  Report Type: Spontaneous
  Country: US (occurrence: US)
  Receive Date: 20210825
  Receipt Date: 20210825
  Transmission Date: 20211014
  Serious: No
  Sender: FDA-Public Use
  Company Number: US-GALDERMA-US2021015292

PATIENT

DRUGS (1)
  1. DIFFERIN GEL [Suspect]
     Active Substance: ADAPALENE
     Indication: ACNE
     Dosage: 1 DOSAGE FORM, QOD (EVERY OTHER DAY)
     Route: 061

REACTIONS (4)
  - Intentional product misuse [Recovered/Resolved]
  - Dry skin [Unknown]
  - Intentional underdose [Recovered/Resolved]
  - Skin irritation [Unknown]
